FAERS Safety Report 6927254-1 (Version None)
Quarter: 2010Q3

REPORT INFORMATION
  Report Type: 
  Country: None (occurrence: None)
  Receive Date: 20100817
  Receipt Date: 20100809
  Transmission Date: 20110219
  Serious: Yes (Hospitalization)
  Sender: FDA-Public Use
  Company Number: US-BIOGENIDEC-2010BI027521

PATIENT
  Age: 42 Year
  Sex: Female
  Weight: 49 kg

DRUGS (4)
  1. TYSABRI [Suspect]
     Indication: MULTIPLE SCLEROSIS
     Route: 042
     Dates: start: 20060101
  2. BACLOFEN [Concomitant]
  3. ACETAMINOPHEN [Concomitant]
     Indication: HEADACHE
  4. GABAPENTIN [Concomitant]

REACTIONS (6)
  - HEADACHE [None]
  - HEAT EXHAUSTION [None]
  - INTERVERTEBRAL DISC PROTRUSION [None]
  - POLLAKIURIA [None]
  - URINARY TRACT INFECTION [None]
  - VULVOVAGINAL MYCOTIC INFECTION [None]
